FAERS Safety Report 14161730 (Version 2)
Quarter: 2017Q4

REPORT INFORMATION
  Report Type: Spontaneous
  Country: ES (occurrence: ES)
  Receive Date: 20171106
  Receipt Date: 20171204
  Transmission Date: 20180321
  Serious: Yes (Other)
  Sender: FDA-Public Use
  Company Number: ES-US WORLDMEDS, LLC-USW201711-001562

PATIENT
  Age: 69 Year
  Sex: Female

DRUGS (12)
  1. COAPROVEL [Concomitant]
     Active Substance: HYDROCHLOROTHIAZIDE\IRBESARTAN
     Dates: start: 20170222
  2. EUTIROX [Concomitant]
     Active Substance: LEVOTHYROXINE SODIUM
     Dates: start: 20170131
  3. OMEPRAZOLE. [Concomitant]
     Active Substance: OMEPRAZOLE
     Dates: start: 20170923
  4. XADAGO [Suspect]
     Active Substance: SAFINAMIDE MESYLATE
     Indication: PARKINSON^S DISEASE
     Route: 048
     Dates: start: 20170303
  5. PRISDAL [Concomitant]
     Active Substance: CITALOPRAM HYDROBROMIDE
     Dates: start: 20170131
  6. ALDACTONE [Concomitant]
     Active Substance: SPIRONOLACTONE
     Dates: start: 20170327
  7. AUXINA E [Concomitant]
     Dates: start: 20171110
  8. LYRICA [Concomitant]
     Active Substance: PREGABALIN
     Dates: start: 20150305
  9. ADIRO [Concomitant]
     Active Substance: ASPIRIN
     Dates: start: 20170327
  10. TRANKIMAZIN [Concomitant]
     Active Substance: ALPRAZOLAM
     Dates: start: 20171110
  11. PARACETAMOL CINFA [Concomitant]
     Dates: start: 20171110
  12. SINEMET [Concomitant]
     Active Substance: CARBIDOPA\LEVODOPA
     Dates: start: 20170222

REACTIONS (1)
  - Superficial spreading melanoma stage IV [Recovered/Resolved]

NARRATIVE: CASE EVENT DATE: 20170921
